FAERS Safety Report 19741979 (Version 2)
Quarter: 2021Q4

REPORT INFORMATION
  Report Type: Spontaneous
  Country: US (occurrence: None)
  Receive Date: 20210824
  Receipt Date: 20211126
  Transmission Date: 20220303
  Serious: Yes (Other)
  Sender: FDA-Public Use
  Company Number: 2018SF65475

PATIENT
  Age: 52 Year
  Sex: Female
  Weight: 67.1 kg

DRUGS (30)
  1. NEXIUM [Suspect]
     Active Substance: ESOMEPRAZOLE MAGNESIUM
     Indication: Gastrooesophageal reflux disease
     Route: 048
     Dates: start: 2005, end: 2017
  2. NEXIUM [Suspect]
     Active Substance: ESOMEPRAZOLE MAGNESIUM
     Indication: Gastrooesophageal reflux disease
     Route: 048
     Dates: start: 2015
  3. NEXIUM 24HR [Suspect]
     Active Substance: ESOMEPRAZOLE MAGNESIUM
     Indication: Gastrooesophageal reflux disease
     Route: 048
     Dates: start: 2016
  4. NEXIUM 24HR [Suspect]
     Active Substance: ESOMEPRAZOLE MAGNESIUM
     Indication: Gastrooesophageal reflux disease
     Route: 048
     Dates: start: 2016
  5. PRILOSEC [Suspect]
     Active Substance: OMEPRAZOLE MAGNESIUM
     Indication: Gastrooesophageal reflux disease
     Route: 048
     Dates: start: 1996, end: 2001
  6. SEREX [Concomitant]
  7. TIMOPTIC [Concomitant]
     Active Substance: TIMOLOL MALEATE
  8. CLOTRIMAZOLE AND BETAMETHASONE DIPROPIONATE [Concomitant]
     Active Substance: BETAMETHASONE\BETAMETHASONE DIPROPIONATE\CLOTRIMAZOLE
  9. PROAIR HFA [Concomitant]
     Active Substance: ALBUTEROL SULFATE
  10. ATORVASTATIN [Concomitant]
     Active Substance: ATORVASTATIN
     Indication: Blood cholesterol increased
  11. AMOXICILLIN [Concomitant]
     Active Substance: AMOXICILLIN
     Indication: Infection
  12. CIPROFLOXACIN [Concomitant]
     Active Substance: CIPROFLOXACIN
     Indication: Infection
  13. TRAMADOL [Concomitant]
     Active Substance: TRAMADOL
     Indication: Pain
  14. LOSARTAN [Concomitant]
     Active Substance: LOSARTAN
     Indication: Blood pressure abnormal
  15. MELOXICAM [Concomitant]
     Active Substance: MELOXICAM
     Indication: Arthritis
  16. LEVAQUIN [Concomitant]
     Active Substance: LEVOFLOXACIN
     Indication: Infection
  17. CARBAMAZEPINE [Concomitant]
     Active Substance: CARBAMAZEPINE
     Indication: Seizure
  18. TORADOL [Concomitant]
     Active Substance: KETOROLAC TROMETHAMINE
     Indication: Pain
  19. AZITHROMYCIN [Concomitant]
     Active Substance: AZITHROMYCIN
     Indication: Infection
  20. IBUPROFEN [Concomitant]
     Active Substance: IBUPROFEN
     Indication: Pain
  21. ASPIRIN [Concomitant]
     Active Substance: ASPIRIN
  22. BENADRYL [Concomitant]
     Active Substance: DIPHENHYDRAMINE HYDROCHLORIDE
     Indication: Hypersensitivity
  23. CLARITIN [Concomitant]
     Active Substance: LORATADINE
  24. VITAMIN D3 [Concomitant]
     Active Substance: CHOLECALCIFEROL
  25. VITAMIN C [Concomitant]
     Active Substance: ASCORBIC ACID
  26. CALCIUM [Concomitant]
     Active Substance: CALCIUM
  27. MAGNESIUM [Concomitant]
     Active Substance: MAGNESIUM
  28. ZANTAC [Concomitant]
     Active Substance: RANITIDINE HYDROCHLORIDE
  29. TUMS [Concomitant]
     Active Substance: CALCIUM CARBONATE
  30. GAVISCON [Concomitant]
     Active Substance: ALUMINUM HYDROXIDE\MAGNESIUM CARBONATE

REACTIONS (5)
  - Acute kidney injury [Not Recovered/Not Resolved]
  - Renal failure [Unknown]
  - Chronic kidney disease [Not Recovered/Not Resolved]
  - Renal neoplasm [Not Recovered/Not Resolved]
  - Kidney enlargement [Not Recovered/Not Resolved]

NARRATIVE: CASE EVENT DATE: 20160101
